FAERS Safety Report 9113063 (Version 1)
Quarter: 2013Q1

REPORT INFORMATION
  Report Type: Spontaneous
  Country: JP (occurrence: JP)
  Receive Date: 20130211
  Receipt Date: 20130211
  Transmission Date: 20140127
  Serious: Yes (Death, Hospitalization, Other)
  Sender: FDA-Public Use
  Company Number: JP-BAXTER-2013BAX005271

PATIENT
  Age: 64 Year
  Sex: Male

DRUGS (3)
  1. ENDOXAN [Suspect]
     Indication: CHRONIC LYMPHOCYTIC LEUKAEMIA
     Dates: start: 20120607
  2. FLUDARABINE [Suspect]
     Indication: CHRONIC LYMPHOCYTIC LEUKAEMIA
     Dates: start: 200901, end: 201110
  3. RITUXIMAB [Suspect]
     Indication: CHRONIC LYMPHOCYTIC LEUKAEMIA
     Dates: start: 20120607

REACTIONS (3)
  - Autoimmune haemolytic anaemia [Fatal]
  - Respiratory failure [Fatal]
  - Renal failure [Fatal]
